FAERS Safety Report 18136085 (Version 3)
Quarter: 2020Q4

REPORT INFORMATION
  Report Type: Spontaneous
  Country: MA (occurrence: MA)
  Receive Date: 20200811
  Receipt Date: 20201203
  Transmission Date: 20210113
  Serious: Yes (Death, Hospitalization, Other)
  Sender: FDA-Public Use
  Company Number: MA-SA-2020SA207739

PATIENT

DRUGS (1)
  1. CEREZYME [Suspect]
     Active Substance: IMIGLUCERASE
     Indication: GAUCHER^S DISEASE TYPE I
     Dosage: 60 IU/KG, QOW (60UI(9)50UI)
     Route: 041
     Dates: start: 20200619, end: 20200804

REACTIONS (9)
  - Coma [Fatal]
  - Pyrexia [Unknown]
  - Blood creatinine increased [Fatal]
  - Hepatic encephalopathy [Unknown]
  - Altered state of consciousness [Fatal]
  - Renal failure [Fatal]
  - Blood urea increased [Fatal]
  - Hypoglycaemia [Unknown]
  - Gingival bleeding [Unknown]

NARRATIVE: CASE EVENT DATE: 2020
